FAERS Safety Report 8910748 (Version 1)
Quarter: 2012Q4

REPORT INFORMATION
  Report Type: Spontaneous
  Country: ES (occurrence: None)
  Receive Date: 20121113
  Receipt Date: 20121113
  Transmission Date: 20130627
  Serious: Yes (Other)
  Sender: FDA-Public Use
  Company Number: 2012-1228

PATIENT
  Age: 68 Year
  Sex: Male
  Weight: 66.5 kg

DRUGS (31)
  1. CARFILZOMIB [Suspect]
     Indication: MULTIPLE MYELOMA
     Dosage: 10 mg  (35 mg,  Days 1,  2), Intravenous
     Route: 042
     Dates: start: 20110622, end: 20110623
  2. CARFILZOMIB [Suspect]
     Indication: MULTIPLE MYELOMA
     Dosage: 8.9524 mg  (47 mg, Days 8, 9, 15, 16), Intravenous
     Route: 042
     Dates: start: 20110629, end: 20110630
  3. CARFILZOMIB [Suspect]
     Indication: MULTIPLE MYELOMA
     Dosage: 10.0714 mg  (47 mg,  Days  1, 2, 8, 9, 15, 16,  every 28 days), Intravenous
     Route: 042
     Dates: start: 20110720, end: 20110922
  4. CARFILZOMIB [Suspect]
     Indication: MULTIPLE MYELOMA
     Dosage: 10.0714 mg  (47 mg, Days  1, 2, 8, 9, 15, 16, every 28 days)  Intravenous
     Route: 042
     Dates: start: 20111013, end: 20120119
  5. CARFILZOMIB [Suspect]
     Indication: MULTIPLE MYELOMA
     Dosage: 10.0714 mg  (47 mg, Days 1, 2, 8, 9, 15, 16, every 28 days), Intravenous
     Route: 042
     Dates: start: 20120201, end: 20120201
  6. CARFILZOMIB [Suspect]
     Indication: MULTIPLE MYELOMA
     Dosage: 6.7143 mg  (47 mg,  Days 1,  2,  15,  16  every 28 days), Intravenous
     Route: 042
     Dates: start: 20120202, end: 20120209
  7. CARFILZOMIB [Suspect]
     Indication: MULTIPLE MYELOMA
     Dosage: 10.0714 mg  (47 mg,  Days  1, 2, 8, 9, 15, 16 every 28 days), Intravenous
     Route: 042
     Dates: start: 20120315, end: 20120531
  8. CARFILZOMIB [Suspect]
     Indication: MULTIPLE MYELOMA
     Dosage: 6.7143 mg  (47 mg,  Days 1, 2, 15, 16 every 28 days),  Intravenous
     Route: 042
     Dates: start: 20120613, end: 20121018
  9. LENALIDOMIDE [Suspect]
     Indication: MULTIPLE MYELOMA
     Dosage: 18.75 mg (25 mg, Days 1-21, every 28 days),  Oral
     Route: 048
     Dates: start: 20110622, end: 20110705
  10. LENALIDOMIDE [Suspect]
     Indication: MULTIPLE MYELOMA
     Dosage: 18.75 mg (25 mg, Days 1-21, every 28 days),  Oral
     Route: 048
     Dates: start: 20110708, end: 20110712
  11. LENALIDOMIDE [Suspect]
     Indication: MULTIPLE MYELOMA
     Dosage: 11.25 mg (15 mg, Days 1-21, every 28 days), Oral
     Route: 048
     Dates: start: 20110720, end: 20110809
  12. LENALIDOMIDE [Suspect]
     Indication: MULTIPLE MYELOMA
     Dosage: 18.75 mg (25 mg, Days 1-21, every 28 days), Oral
     Route: 048
     Dates: start: 20110817, end: 20110927
  13. LENALIDOMIDE [Suspect]
     Indication: MULTIPLE MYELOMA
     Dosage: 18.75 mg (25 mg, Days 1-21, every 28 days), Oral
     Route: 048
     Dates: start: 20110929, end: 20120214
  14. LENALIDOMIDE [Suspect]
     Indication: MULTIPLE MYELOMA
     Dosage: 11.25 mg (15 mg, Days 1-21, every 28 days), Oral
     Route: 048
     Dates: start: 20120315, end: 20120911
  15. DEXAMETHASONE [Suspect]
     Indication: MULTIPLE MYELOMA
     Dosage: 5.7143 mg  (40mg, Days 1, 8, 15, 22 every 28 days)
     Dates: start: 20110622, end: 20110921
  16. DEXAMETHASONE [Suspect]
     Indication: MULTIPLE MYELOMA
     Dosage: 5.7143 mg  (40 mg, Days 1, 8, 15, 22, every 28 days)
     Dates: start: 20111005, end: 20120215
  17. DEXAMETHASONE [Suspect]
     Indication: MULTIPLE MYELOMA
     Dosage: 5.7143 mg (40 mg, Days 1, 8, 15, 22, every 28 days)
     Dates: start: 20120315, end: 20120912
  18. ACICLOVIR [Concomitant]
  19. ALENDRONIC ACID [Concomitant]
  20. CALCIUM [Concomitant]
  21. CLEXANE [Concomitant]
  22. DEFLAZACORT [Concomitant]
  23. DOXAZOSINE (DOXAZOSIN MESILATE) (DOXAZOSIN MESILATE) [Concomitant]
  24. DULOXETINE (DULOXETINE) (DULOXETINE) [Concomitant]
  25. DUTASTERIDE (DUTASTERIDE) (DUTASTERIDE) [Concomitant]
  26. PARACETAMOL (PARACETAMOL) (PARACETAMOL) [Concomitant]
  27. PROSTUROL (BENZYDAMINE HYDROCHLORIDE) ( BENZYDAMINE HYDROCHLORIDE) [Concomitant]
  28. TANAKENE (GINKO BILOBA EXTRACT) (DROPS) (GINKGO BILOBA EXTRACT) [Concomitant]
  29. TRAMADOL (TRAMADOL) (TRAMADOL) [Concomitant]
  30. URGENIN (SERENOA REPENS EXTRACT) (DROPS) (SERENOA REPENS EXTRACT) [Concomitant]
  31. VALIUM (DIAZEPAM) ( DIAZEPAM) [Concomitant]

REACTIONS (1)
  - Myelodysplastic syndrome [None]
